FAERS Safety Report 6227716-9 (Version None)
Quarter: 2009Q2

REPORT INFORMATION
  Report Type: 
  Country: None (occurrence: None)
  Receive Date: 20090612
  Receipt Date: 20090609
  Transmission Date: 20091009
  Serious: Yes (Death)
  Sender: FDA-Public Use
  Company Number: JP-NOVOPROD-288175

PATIENT
  Age: 84 Year

DRUGS (2)
  1. NOVOSEVEN [Suspect]
     Indication: ACQUIRED HAEMOPHILIA
     Dosage: 19.2 MG, UNK
     Route: 042
     Dates: start: 20090523, end: 20090525
  2. NOVOSEVEN [Suspect]
     Indication: HAEMORRHAGE INTRACRANIAL

REACTIONS (1)
  - DRUG INEFFECTIVE [None]
